FAERS Safety Report 5726849-0 (Version None)
Quarter: 2008Q2

REPORT INFORMATION
  Report Type: 
  Country: None (occurrence: None)
  Receive Date: 20080502
  Receipt Date: 20080423
  Transmission Date: 20081010
  Serious: Yes (Congenital Anomaly)
  Sender: FDA-Public Use
  Company Number: FR-PFIZER INC-2008036005

PATIENT
  Sex: Male

DRUGS (2)
  1. XANAX [Suspect]
     Route: 064
  2. EFFEXOR [Suspect]
     Route: 064
     Dates: end: 20070211

REACTIONS (3)
  - DRUG EXPOSURE DURING PREGNANCY [None]
  - DYSMORPHISM [None]
  - MICROCEPHALY [None]
